FAERS Safety Report 19063452 (Version 6)
Quarter: 2021Q2

REPORT INFORMATION
  Report Type: Report from Study
  Country: US (occurrence: US)
  Receive Date: 20210326
  Receipt Date: 20210607
  Transmission Date: 20210717
  Serious: Yes (Hospitalization, Other)
  Sender: FDA-Public Use
  Company Number: NVSC2021US056436

PATIENT
  Age: 7 Month
  Sex: Female
  Weight: 10.7 kg

DRUGS (4)
  1. ZOLGENSMA [Suspect]
     Active Substance: ONASEMNOGENE ABEPARVOVEC-XIOI
     Dosage: UNK
     Route: 042
  2. PREDNISOLONE. [Concomitant]
     Active Substance: PREDNISOLONE
     Dosage: 1 MG/KG, QD
     Route: 065
  3. ZOLGENSMA [Suspect]
     Active Substance: ONASEMNOGENE ABEPARVOVEC-XIOI
     Indication: SPINAL MUSCULAR ATROPHY
     Dosage: 55 ML, ONCE/SINGLE (11 X 10EXP14 VG/ 55 ML (IN TWO SYRINGES))
     Route: 042
     Dates: start: 20210223, end: 20210223
  4. PREDNISOLONE. [Concomitant]
     Active Substance: PREDNISOLONE
     Indication: PRODUCT USED FOR UNKNOWN INDICATION
     Dosage: 2 MG/KG
     Route: 065

REACTIONS (6)
  - Oedema [Recovering/Resolving]
  - Vomiting [Recovering/Resolving]
  - Thrombotic microangiopathy [Recovering/Resolving]
  - Escherichia infection [Recovering/Resolving]
  - Kidney infection [Recovered/Resolved]
  - Hepatic enzyme increased [Recovering/Resolving]

NARRATIVE: CASE EVENT DATE: 20210304
